FAERS Safety Report 7965373-1 (Version None)
Quarter: 2011Q4

REPORT INFORMATION
  Report Type: 
  Country: None (occurrence: None)
  Receive Date: 20111208
  Receipt Date: 20111201
  Transmission Date: 20120403
  Serious: Yes (Disabling)
  Sender: FDA-Public Use
  Company Number: GB-TEVA-311663ISR

PATIENT
  Age: 14 Year
  Sex: Male
  Weight: 65 kg

DRUGS (1)
  1. RISPERIDONE [Suspect]
     Indication: AGGRESSION
     Route: 048
     Dates: end: 20110321

REACTIONS (1)
  - GROWTH RETARDATION [None]
